FAERS Safety Report 8791675 (Version 1)
Quarter: 2012Q4

REPORT INFORMATION
  Report Type: 
  Country: BR (occurrence: BR)
  Receive Date: 20120918
  Receipt Date: 20120918
  Transmission Date: 20130627
  Serious: Yes (Other)
  Sender: FDA-Public Use
  Company Number: PHHY2012BR080090

PATIENT
  Sex: Female

DRUGS (2)
  1. DIOVAN [Suspect]
     Dosage: UNK UKN, UNK
  2. AMLODIPINE BESYLATE [Concomitant]
     Dosage: UNK UKN, UNK
     Dates: end: 20120909

REACTIONS (4)
  - Diabetes mellitus [Unknown]
  - Tremor [Unknown]
  - Oedema peripheral [Not Recovered/Not Resolved]
  - Blood pressure increased [Unknown]
